FAERS Safety Report 4590903-X (Version None)
Quarter: 2005Q1

REPORT INFORMATION
  Report Type: 
  Country: None (occurrence: None)
  Receive Date: 20050225
  Receipt Date: 20050120
  Transmission Date: 20050727
  Serious: No
  Sender: FDA-Public Use
  Company Number: US-GLAXOSMITHKLINE-A0541562A

PATIENT
  Age: 40 Year
  Sex: Male

DRUGS (2)
  1. EPZICOM [Suspect]
     Indication: ILL-DEFINED DISORDER
     Route: 048
     Dates: start: 20050120
  2. VIRAMUNE [Concomitant]

REACTIONS (2)
  - HEADACHE [None]
  - NECK PAIN [None]
